FAERS Safety Report 17349606 (Version 1)
Quarter: 2020Q1

REPORT INFORMATION
  Report Type: Spontaneous
  Country: US (occurrence: US)
  Receive Date: 20200130
  Receipt Date: 20200130
  Transmission Date: 20200409
  Serious: No
  Sender: FDA-Public Use
  Company Number: US-AUROBINDO-AUR-APL-2019-034600

PATIENT
  Age: 77 Year
  Sex: Female
  Weight: 45.35 kg

DRUGS (2)
  1. DULOXETINE. [Suspect]
     Active Substance: DULOXETINE
     Indication: BURNING MOUTH SYNDROME
     Dosage: UNK
     Route: 065
     Dates: start: 20190601
  2. DULOXETINE DELAYED-RELEASE CAPSULES USP 20 MG [Suspect]
     Active Substance: DULOXETINE
     Indication: BURNING MOUTH SYNDROME
     Dosage: 1 DOSAGE FORM, DAILY
     Route: 065
     Dates: start: 201903

REACTIONS (2)
  - Off label use [Unknown]
  - Drug ineffective for unapproved indication [Unknown]
